FAERS Safety Report 18021550 (Version 1)
Quarter: 2020Q3

REPORT INFORMATION
  Report Type: Other
  Country: US (occurrence: US)
  Receive Date: 20200714
  Receipt Date: 20200714
  Transmission Date: 20201103
  Serious: Yes (Other)
  Sender: FDA-Public Use
  Company Number: US-ROCHE-2641097

PATIENT
  Age: 75 Year

DRUGS (2)
  1. VEMURAFENIB. [Suspect]
     Active Substance: VEMURAFENIB
     Indication: ERDHEIM-CHESTER DISEASE
     Route: 065
  2. VEMURAFENIB. [Suspect]
     Active Substance: VEMURAFENIB
     Route: 065

REACTIONS (6)
  - Dysphonia [Unknown]
  - Intentional product use issue [Unknown]
  - Off label use [Unknown]
  - Deafness [Unknown]
  - Arthralgia [Unknown]
  - Myalgia [Unknown]
